FAERS Safety Report 18672941 (Version 2)
Quarter: 2021Q2

REPORT INFORMATION
  Report Type: Spontaneous
  Country: JP (occurrence: JP)
  Receive Date: 20201229
  Receipt Date: 20210420
  Transmission Date: 20210717
  Serious: No
  Sender: FDA-Public Use
  Company Number: JP-ROCHE-2740639

PATIENT
  Age: 60 Year
  Sex: Male
  Weight: 53 kg

DRUGS (9)
  1. TECENTRIQ [Suspect]
     Active Substance: ATEZOLIZUMAB
     Indication: HEPATOCELLULAR CARCINOMA
     Route: 041
     Dates: start: 20201125, end: 20201125
  2. HEPAACT [Concomitant]
     Route: 065
     Dates: start: 20181112
  3. TRIAZOLAM. [Concomitant]
     Active Substance: TRIAZOLAM
     Route: 065
  4. LANTUS XR [Concomitant]
     Active Substance: INSULIN GLARGINE
     Route: 065
  5. SULTANOL [Concomitant]
     Active Substance: ALBUTEROL SULFATE
     Route: 055
  6. LIXIANA [Concomitant]
     Active Substance: EDOXABAN TOSYLATE
     Route: 065
     Dates: start: 20200617
  7. HUMALOG [Concomitant]
     Active Substance: INSULIN LISPRO
     Route: 065
  8. RELVAR [Concomitant]
     Active Substance: FLUTICASONE FUROATE\VILANTEROL TRIFENATATE
     Route: 055
  9. AVASTIN [Suspect]
     Active Substance: BEVACIZUMAB
     Indication: HEPATOCELLULAR CARCINOMA
     Dosage: DOSAGE IS UNCERTAIN.
     Route: 041
     Dates: start: 20201125, end: 20201125

REACTIONS (4)
  - Epistaxis [Unknown]
  - White blood cell count decreased [Recovering/Resolving]
  - Platelet count decreased [Recovering/Resolving]
  - Pyrexia [Recovering/Resolving]

NARRATIVE: CASE EVENT DATE: 20201211
